FAERS Safety Report 6300124-8 (Version None)
Quarter: 2009Q3

REPORT INFORMATION
  Report Type: 
  Country: None (occurrence: None)
  Receive Date: 20090806
  Receipt Date: 20090731
  Transmission Date: 20100115
  Serious: Yes (Death, Hospitalization)
  Sender: FDA-Public Use
  Company Number: ES-ELI_LILLY_AND_COMPANY-ES200908000406

PATIENT
  Age: 76 Year
  Sex: Male

DRUGS (2)
  1. FORTEO [Suspect]
     Indication: OSTEOPOROSIS
     Dosage: 20 UG, UNK
     Route: 058
     Dates: start: 20090501, end: 20090501
  2. OPIOIDS [Concomitant]
     Indication: PAIN

REACTIONS (3)
  - AORTIC THROMBOSIS [None]
  - GASTROINTESTINAL NECROSIS [None]
  - RESPIRATORY FAILURE [None]
